FAERS Safety Report 12637116 (Version 2)
Quarter: 2017Q2

REPORT INFORMATION
  Report Type: Spontaneous
  Country: US (occurrence: US)
  Receive Date: 20160809
  Receipt Date: 20170413
  Transmission Date: 20170830
  Serious: No
  Sender: FDA-Public Use
  Company Number: US-SHIRE-US201609950

PATIENT
  Age: 62 Year
  Sex: Female
  Weight: 104.31 kg

DRUGS (5)
  1. VITAMIN C [Concomitant]
     Active Substance: ASCORBIC ACID
     Indication: NUTRITIONAL SUPPLEMENTATION
     Dosage: 500 MG, 1X/DAY:QD
     Route: 048
     Dates: start: 2006
  2. LIALDA [Suspect]
     Active Substance: MESALAMINE
     Indication: COLITIS ULCERATIVE
     Dosage: 4.8 G (FOUR 1.2 G TABLETS), 1X/DAY:QD
     Route: 048
     Dates: start: 2008
  3. VITAMIN B6 [Concomitant]
     Active Substance: PYRIDOXINE HYDROCHLORIDE
     Indication: NUTRITIONAL SUPPLEMENTATION
     Dosage: UNK, 1X/DAY:QD
     Route: 048
     Dates: start: 2006
  4. CALCIUM VITAMIN D [Concomitant]
     Active Substance: CALCIUM\VITAMIN D
     Indication: NUTRITIONAL SUPPLEMENTATION
     Dosage: 600 MG, 1X/DAY:QD
     Route: 048
     Dates: start: 2006
  5. CENTRUM SILVER                     /07431401/ [Concomitant]
     Indication: NUTRITIONAL SUPPLEMENTATION
     Dosage: UNK, UNKNOWN
     Route: 065
     Dates: start: 2012

REACTIONS (4)
  - Cardiac disorder [Not Recovered/Not Resolved]
  - Hypotrichosis [Not Recovered/Not Resolved]
  - Alopecia [Not Recovered/Not Resolved]
  - Trigeminal neuralgia [Not Recovered/Not Resolved]

NARRATIVE: CASE EVENT DATE: 2008
